FAERS Safety Report 10227054 (Version 2)
Quarter: 2014Q2

REPORT INFORMATION
  Report Type: Spontaneous
  Country: US (occurrence: None)
  Receive Date: 20140529
  Receipt Date: 20140613
  Transmission Date: 20141212
  Serious: Yes (Other)
  Sender: FDA-Public Use
  Company Number: WIL-018-14-US FU#2

PATIENT
  Age: 15 Year
  Sex: Female
  Weight: 91 kg

DRUGS (3)
  1. WILATE [Suspect]
     Indication: VON WILLEBRAND^S DISEASE
     Dosage: 1X 1/D?(NOT OTHERWISE SPECIFIED)
     Route: 042
     Dates: start: 20140423, end: 20140423
  2. TRANEXAMIC ACID [Concomitant]
  3. IRON  SUPPLEMENT [Concomitant]

REACTIONS (5)
  - Flushing [None]
  - Urticaria [None]
  - Vomiting [None]
  - Nausea [None]
  - Throat tightness [None]
